FAERS Safety Report 7092727-0 (Version None)
Quarter: 2010Q4

REPORT INFORMATION
  Report Type: 
  Country: None (occurrence: None)
  Receive Date: 20101101
  Receipt Date: 20100831
  Transmission Date: 20110411
  Serious: Yes (Life-Threatening, Hospitalization)
  Sender: FDA-Public Use
  Company Number: 2010SA052366

PATIENT
  Age: 48 Year
  Sex: Female

DRUGS (11)
  1. SITAGLIPTIN PHOSPHATE [Suspect]
     Indication: TYPE 2 DIABETES MELLITUS
     Dosage: 100 MILLIGRAM(S);CAPSULE;ORAL;DAILY
     Route: 048
     Dates: start: 20100420
  2. PLACEBO [Suspect]
     Indication: TYPE 2 DIABETES MELLITUS
     Dosage: SEE IMAGE
     Route: 058
     Dates: start: 20100420, end: 20100427
  3. PLACEBO [Suspect]
     Indication: TYPE 2 DIABETES MELLITUS
     Dosage: SEE IMAGE
     Route: 058
     Dates: start: 20100428, end: 20100504
  4. PLACEBO [Suspect]
     Indication: TYPE 2 DIABETES MELLITUS
     Dosage: SEE IMAGE
     Route: 058
     Dates: start: 20100505
  5. OPTICLICK [Suspect]
     Indication: TYPE 2 DIABETES MELLITUS
     Dosage: ADMINISTRATION DEVICE;DAILY
     Dates: start: 20100416
  6. LOSARTAN (LOSARTAN POTASSIUM) [Concomitant]
  7. HYDROCHLOROTHIAZIDE [Concomitant]
  8. ASPIRIN [Concomitant]
  9. PENTOXIFYLLINE [Concomitant]
  10. METFORMIN HCL [Concomitant]
  11. PREV MEDS =UNKNOWN [Concomitant]

REACTIONS (2)
  - ABSCESS LIMB [None]
  - ANAEMIA [None]
